FAERS Safety Report 5893382-5 (Version None)
Quarter: 2008Q3

REPORT INFORMATION
  Report Type: 
  Country: None (occurrence: None)
  Receive Date: 20080923
  Receipt Date: 20080918
  Transmission Date: 20090109
  Serious: Yes (Hospitalization)
  Sender: FDA-Public Use
  Company Number: US-MERCK-0805USA00692

PATIENT
  Age: 59 Year
  Sex: Female
  Weight: 77 kg

DRUGS (6)
  1. FOSAMAX [Suspect]
     Indication: OSTEOPENIA
     Route: 048
     Dates: start: 20021001, end: 20031101
  2. FOSAMAX [Suspect]
     Route: 048
     Dates: start: 20031101, end: 20070701
  3. FOSAMAX [Suspect]
     Indication: OSTEOPOROSIS
     Route: 048
     Dates: start: 20021001, end: 20031101
  4. FOSAMAX [Suspect]
     Route: 048
     Dates: start: 20031101, end: 20070701
  5. PREMARIN [Concomitant]
     Indication: HORMONE REPLACEMENT THERAPY
     Route: 065
     Dates: start: 19840101
  6. EFFEXOR [Concomitant]
     Indication: DEPRESSION
     Route: 065
     Dates: start: 20020101, end: 20080501

REACTIONS (15)
  - ABSCESS [None]
  - ADVERSE DRUG REACTION [None]
  - CERVICAL DYSPLASIA [None]
  - DIARRHOEA [None]
  - FISTULA [None]
  - GOITRE [None]
  - HAEMANGIOMA [None]
  - HAEMORRHAGE [None]
  - JAW FRACTURE [None]
  - OSTEONECROSIS [None]
  - POLYP COLORECTAL [None]
  - RESORPTION BONE INCREASED [None]
  - SMALL INTESTINAL OBSTRUCTION [None]
  - TOOTH FRACTURE [None]
  - VAGINAL DYSPLASIA [None]
